FAERS Safety Report 20844365 (Version 1)
Quarter: 2022Q2

REPORT INFORMATION
  Report Type: Spontaneous
  Country: None (occurrence: SE)
  Receive Date: 20220518
  Receipt Date: 20220518
  Transmission Date: 20220720
  Serious: Yes (Hospitalization)
  Sender: FDA-Public Use
  Company Number: SE-B.Braun Medical Inc.-2128901

PATIENT
  Age: 86 Year
  Sex: Male

DRUGS (14)
  1. ACETAMINOPHEN [Suspect]
     Active Substance: ACETAMINOPHEN
  2. RAMIPRIL [Suspect]
     Active Substance: RAMIPRIL
  3. ELIQUIS [Suspect]
     Active Substance: APIXABAN
  4. FELODIPINE [Suspect]
     Active Substance: FELODIPINE
  5. OMEPRAZOLE [Suspect]
     Active Substance: OMEPRAZOLE
  6. Moxalol [Concomitant]
  7. Xyloproct [Concomitant]
  8. CYANOCOBALAMIN [Concomitant]
     Active Substance: CYANOCOBALAMIN
  9. ISONOVA [Concomitant]
  10. ZOPICLONE [Concomitant]
     Active Substance: ZOPICLONE
  11. OXAZEPAM [Concomitant]
     Active Substance: OXAZEPAM
  12. Glytrin [Concomitant]
  13. CALCIUM CARBONATE\CHOLECALCIFEROL [Concomitant]
     Active Substance: CALCIUM CARBONATE\CHOLECALCIFEROL
  14. ROSUVASTATIN [Concomitant]
     Active Substance: ROSUVASTATIN

REACTIONS (3)
  - Dizziness [Recovered/Resolved]
  - Toxicity to various agents [Recovered/Resolved]
  - Accidental overdose [Recovered/Resolved]
